FAERS Safety Report 4969349-8 (Version None)
Quarter: 2006Q2

REPORT INFORMATION
  Report Type: 
  Country: None (occurrence: None)
  Receive Date: 20060405
  Receipt Date: 20060323
  Transmission Date: 20061013
  Serious: Yes (Other)
  Sender: FDA-Public Use
  Company Number: 2006042899

PATIENT
  Sex: Male
  Weight: 81.6475 kg

DRUGS (3)
  1. LIPITOR (ATORVASTATIN) [Suspect]
     Indication: BLOOD CHOLESTEROL INCREASED
     Dosage: DAILY ,ORAL
     Route: 048
     Dates: start: 20050101, end: 20060101
  2. COUMADIN [Suspect]
     Indication: ILL-DEFINED DISORDER
  3. ALL OTHER THERAPEUTIC PRODUCTS [Concomitant]

REACTIONS (2)
  - MYOCARDIAL INFARCTION [None]
  - T-CELL LYMPHOMA [None]
